FAERS Safety Report 25944951 (Version 1)
Quarter: 2025Q4

REPORT INFORMATION
  Report Type: Spontaneous
  Country: US (occurrence: US)
  Receive Date: 20251021
  Receipt Date: 20251021
  Transmission Date: 20260118
  Serious: No
  Sender: Phathom Pharmaceuticals
  Company Number: US-PHATHOM PHARMACEUTICALS INC.-2025PHT02558

PATIENT
  Age: 70 Year
  Sex: Female
  Weight: 76.145 kg

DRUGS (7)
  1. VOQUEZNA [Suspect]
     Active Substance: VONOPRAZAN FUMARATE
     Dosage: 20 MG, 1X/DAY
     Route: 048
     Dates: start: 20250908
  2. FAMOTIDINE [Concomitant]
     Active Substance: FAMOTIDINE
  3. BRILINTA [Concomitant]
     Active Substance: TICAGRELOR
  4. REPATHA [Concomitant]
     Active Substance: EVOLOCUMAB
  5. DICLOFENAC [Concomitant]
     Active Substance: DICLOFENAC
  6. MISOPROSTOL [Concomitant]
     Active Substance: MISOPROSTOL
  7. LEVOTHYROXINE [Concomitant]
     Active Substance: LEVOTHYROXINE

REACTIONS (5)
  - Sensation of foreign body [Unknown]
  - Abdominal distension [Unknown]
  - Flatulence [Unknown]
  - Diarrhoea [Unknown]
  - Constipation [Unknown]

NARRATIVE: CASE EVENT DATE: 20250909
